FAERS Safety Report 5036288-6 (Version None)
Quarter: 2006Q2

REPORT INFORMATION
  Report Type: 
  Country: None (occurrence: None)
  Receive Date: 20060601
  Receipt Date: 20051130
  Transmission Date: 20061013
  Serious: No
  Sender: FDA-Public Use
  Company Number: US200511003037

PATIENT
  Age: 39 Year
  Sex: Male

DRUGS (3)
  1. CYMBALTA [Suspect]
     Indication: BACK PAIN
     Dosage: 30 MG, DAILY (1/D), ORAL
     Route: 048
     Dates: start: 20050601
  2. ZANAFLEX [Concomitant]
  3. LORCET-HD [Concomitant]

REACTIONS (3)
  - DRUG INEFFECTIVE [None]
  - MUSCULAR WEAKNESS [None]
  - PAIN [None]
